FAERS Safety Report 25496953 (Version 1)
Quarter: 2025Q3

REPORT INFORMATION
  Report Type: Report from Study
  Country: US (occurrence: US)
  Receive Date: 20250701
  Receipt Date: 20250701
  Transmission Date: 20251020
  Serious: Yes (Hospitalization, Other)
  Sender: TAKEDA
  Company Number: US-TAKEDA-2025TUS057778

PATIENT
  Sex: Female
  Weight: 64 kg

DRUGS (30)
  1. MARIBAVIR [Suspect]
     Active Substance: MARIBAVIR
     Indication: Product used for unknown indication
     Dosage: 200 MILLIGRAM, BID
  2. VALCYTE [Concomitant]
     Active Substance: VALGANCICLOVIR HYDROCHLORIDE
     Dosage: 450 MILLIGRAM, QD
     Dates: start: 201305
  3. FOSCARNET SODIUM [Concomitant]
     Active Substance: FOSCARNET SODIUM
     Dosage: UNK, QOD
     Dates: start: 201405
  4. PROMACTA [Concomitant]
     Active Substance: ELTROMBOPAG OLAMINE
     Dosage: UNK UNK, QD
     Dates: start: 20241014
  5. PENTAMIDINE MESYLATE [Concomitant]
     Active Substance: PENTAMIDINE MESYLATE
     Dosage: UNK UNK, MONTHLY
     Dates: start: 20250507
  6. ECULIZUMAB [Concomitant]
     Active Substance: ECULIZUMAB
  7. ACYCLOVIR [Concomitant]
     Active Substance: ACYCLOVIR
  8. LASIX [Concomitant]
     Active Substance: FUROSEMIDE
     Indication: Fluid retention
     Dosage: 40 MILLIGRAM, QOD
  9. ALDACTONE [Concomitant]
     Active Substance: SPIRONOLACTONE
     Dosage: 100 MILLIGRAM, QD
  10. CIPRO [Concomitant]
     Active Substance: CIPROFLOXACIN HYDROCHLORIDE
  11. FLAGYL [Concomitant]
     Active Substance: METRONIDAZOLE\METRONIDAZOLE HYDROCHLORIDE
  12. ZOVIRAX [Concomitant]
     Active Substance: ACYCLOVIR
     Indication: Infection prophylaxis
     Dosage: 400 MILLIGRAM, BID
  13. XANAX [Concomitant]
     Active Substance: ALPRAZOLAM
     Indication: Anxiety
     Dosage: 0.25 MILLIGRAM, QD
  14. NORVASC [Concomitant]
     Active Substance: AMLODIPINE BESYLATE
     Dosage: 5 MILLIGRAM, QD
     Dates: start: 20250623
  15. SYMBICORT [Concomitant]
     Active Substance: BUDESONIDE\FORMOTEROL FUMARATE DIHYDRATE
     Dosage: UNK, BID
  16. DAPSONE [Concomitant]
     Active Substance: DAPSONE
     Dosage: 100 MILLIGRAM, QD
  17. PROMACTA [Concomitant]
     Active Substance: ELTROMBOPAG OLAMINE
     Dosage: 75 MILLIGRAM, BID
  18. VITAMIN D2 [Concomitant]
     Active Substance: ERGOCALCIFEROL
     Dosage: UNK UNK, 1/WEEK
  19. LEXAPRO [Concomitant]
     Active Substance: ESCITALOPRAM OXALATE
     Indication: Major depression
     Dosage: 10 MILLIGRAM, QD
  20. CORTEF [Concomitant]
     Active Substance: HYDROCORTISONE
     Dosage: 10 MILLIGRAM, BID
  21. NARCAN [Concomitant]
     Active Substance: NALOXONE HYDROCHLORIDE
     Indication: Overdose
  22. ZOFRAN [Concomitant]
     Active Substance: ONDANSETRON HYDROCHLORIDE
     Indication: Prophylaxis of nausea and vomiting
     Dosage: 4 MILLIGRAM, QID
  23. PROTONIX [Concomitant]
     Active Substance: PANTOPRAZOLE SODIUM
     Indication: Gastric ulcer
     Dosage: 40 MILLIGRAM, QD
  24. VEETIDS [Concomitant]
     Active Substance: PENICILLIN V POTASSIUM
     Indication: Infection prophylaxis
     Dosage: 750 MILLIGRAM, BID
  25. KLOR-CON [Concomitant]
     Active Substance: POTASSIUM CHLORIDE
     Dosage: 30 MILLIEQUIVALENT, QD
  26. ULTRAM [Concomitant]
     Active Substance: TRAMADOL HYDROCHLORIDE
     Indication: Pain
     Dosage: 150 MILLIGRAM, QD
  27. DESYREL [Concomitant]
     Active Substance: TRAZODONE HYDROCHLORIDE
     Indication: Insomnia
     Dosage: 25 MILLIGRAM, QD
  28. VANCOCIN [Concomitant]
     Active Substance: VANCOMYCIN HYDROCHLORIDE
     Dosage: 125 MILLIGRAM, BID
  29. BECLOMETHASONE [Concomitant]
     Active Substance: BECLOMETHASONE
     Dosage: 2.5 MILLILITER, BID
     Dates: start: 20250623
  30. ENTOCORT [Concomitant]
     Active Substance: BUDESONIDE

REACTIONS (16)
  - Gastrointestinal haemorrhage [Unknown]
  - Pancytopenia [Unknown]
  - Anaemia [Unknown]
  - Insurance issue [Unknown]
  - Inability to afford medication [Unknown]
  - Abdominal discomfort [Unknown]
  - Product use issue [Unknown]
  - Oedema [Unknown]
  - Mucous stools [Unknown]
  - Peripheral swelling [Recovering/Resolving]
  - Increased tendency to bruise [Unknown]
  - Anxiety [Unknown]
  - Cytomegalovirus infection [Unknown]
  - Nausea [Unknown]
  - Vomiting [Unknown]
  - Diarrhoea [Unknown]
